FAERS Safety Report 8776753 (Version 8)
Quarter: 2013Q2

REPORT INFORMATION
  Report Type: Report from Study
  Country: US (occurrence: US)
  Receive Date: 20120908
  Receipt Date: 20130508
  Transmission Date: 20140414
  Serious: Yes (Life-Threatening, Hospitalization, Other)
  Sender: FDA-Public Use
  Company Number: PHEH2012US016848

PATIENT
  Age: 56 Year
  Sex: Female
  Weight: 79.37 kg

DRUGS (3)
  1. GILENYA [Suspect]
     Indication: MULTIPLE SCLEROSIS
     Dosage: 0.5 MG, QD
     Route: 048
     Dates: start: 20120822
  2. LYRICA [Suspect]
  3. SEROQUEL [Suspect]

REACTIONS (10)
  - Apparent death [Unknown]
  - Bradycardia [Recovering/Resolving]
  - Atrial tachycardia [Recovered/Resolved]
  - Palpitations [Not Recovered/Not Resolved]
  - Oedema [Recovering/Resolving]
  - Sensation of heaviness [Recovering/Resolving]
  - Insomnia [Not Recovered/Not Resolved]
  - Ligament sprain [Unknown]
  - Laryngitis [Not Recovered/Not Resolved]
  - Back pain [Recovered/Resolved]
